FAERS Safety Report 22398076 (Version 1)
Quarter: 2023Q2

REPORT INFORMATION
  Report Type: Spontaneous
  Country: US (occurrence: US)
  Receive Date: 20230602
  Receipt Date: 20230602
  Transmission Date: 20230722
  Serious: Yes (Hospitalization, Other)
  Sender: FDA-Public Use
  Company Number: US-APOTEX-2023AP008482

PATIENT
  Age: 3 Year
  Sex: Male

DRUGS (1)
  1. FENTANYL [Suspect]
     Active Substance: FENTANYL
     Indication: Product used for unknown indication
     Dosage: UNK
     Route: 065

REACTIONS (5)
  - Unresponsive to stimuli [Recovering/Resolving]
  - Mental status changes [Recovering/Resolving]
  - Miosis [Recovering/Resolving]
  - Overdose [Recovering/Resolving]
  - Respiratory depression [Recovering/Resolving]
